FAERS Safety Report 25603199 (Version 3)
Quarter: 2025Q3

REPORT INFORMATION
  Report Type: Spontaneous
  Country: JP (occurrence: JP)
  Receive Date: 20250724
  Receipt Date: 20250812
  Transmission Date: 20251021
  Serious: Yes (Other)
  Sender: PFIZER
  Company Number: JP-GENMAB-2025-02164

PATIENT
  Age: 63 Year
  Sex: Female
  Weight: 38.1 kg

DRUGS (1)
  1. TIVDAK [Suspect]
     Active Substance: TISOTUMAB VEDOTIN-TFTV
     Route: 042
     Dates: start: 20250701

REACTIONS (1)
  - Nephrogenic diabetes insipidus [Unknown]

NARRATIVE: CASE EVENT DATE: 20250715
